FAERS Safety Report 19963762 (Version 2)
Quarter: 2021Q4

REPORT INFORMATION
  Report Type: Spontaneous
  Country: HU (occurrence: HU)
  Receive Date: 20211018
  Receipt Date: 20211028
  Transmission Date: 20220303
  Serious: Yes (Hospitalization, Other)
  Sender: FDA-Public Use
  Company Number: HU-EMA-DD-20200428-FAIZAN_M-111459

PATIENT
  Age: 3 Year
  Sex: Female
  Weight: 20 kg

DRUGS (8)
  1. IBUPROFEN [Suspect]
     Active Substance: IBUPROFEN
     Indication: Pyrexia
     Dosage: UNK
     Route: 065
  2. IBUPROFEN [Suspect]
     Active Substance: IBUPROFEN
     Indication: Pneumonia mycoplasmal
  3. IBUPROFEN [Suspect]
     Active Substance: IBUPROFEN
     Indication: Pneumonia
  4. CEFUROXIME [Suspect]
     Active Substance: CEFUROXIME
     Indication: Pneumonia
     Dosage: UNK
     Route: 065
  5. CEFUROXIME [Suspect]
     Active Substance: CEFUROXIME
     Indication: Pneumonia mycoplasmal
  6. METAMIZOLE [Suspect]
     Active Substance: METAMIZOLE
     Indication: Pyrexia
     Dosage: 1 DOSAGE FORM (1 DOSAGE FORM 3.8 DROPS SOLUTION)
  7. METAMIZOLE [Suspect]
     Active Substance: METAMIZOLE
     Indication: Pneumonia mycoplasmal
  8. METAMIZOLE SODIUM [Suspect]
     Active Substance: METAMIZOLE SODIUM
     Indication: Pneumonia
     Dosage: 1 DOSAGE FORM (1 DOSAGE FORM 3.8 DROPS SOLUTION)
     Route: 065

REACTIONS (2)
  - Stevens-Johnson syndrome [Recovered/Resolved]
  - Product use issue [Unknown]
